FAERS Safety Report 18179816 (Version 14)
Quarter: 2021Q3

REPORT INFORMATION
  Report Type: Spontaneous
  Country: DE (occurrence: DE)
  Receive Date: 20200821
  Receipt Date: 20210710
  Transmission Date: 20211014
  Serious: Yes (Life-Threatening, Hospitalization, Other)
  Sender: FDA-Public Use
  Company Number: NVSC2020DE226417

PATIENT
  Sex: Female
  Weight: 78.6 kg

DRUGS (12)
  1. VALSARTAN ? 1 A PHARMA 160 MG FILMTABLETTEN [Suspect]
     Active Substance: VALSARTAN
     Dosage: 160 MG, QD
     Route: 065
     Dates: start: 201805, end: 201807
  2. LERCANIDIPINE [Concomitant]
     Active Substance: LERCANIDIPINE
     Indication: PRODUCT USED FOR UNKNOWN INDICATION
     Dosage: 20 MG (HALF OF A DOSE ONCE DAILY IN THE MORNING)
     Route: 065
     Dates: start: 20200217, end: 20200221
  3. VALSARTAN ? 1 A PHARMA 160 MG FILMTABLETTEN [Suspect]
     Active Substance: VALSARTAN
     Dosage: 160 MG
     Route: 065
     Dates: start: 201409, end: 201501
  4. VALSARTAN ? 1 A PHARMA 160 MG FILMTABLETTEN [Suspect]
     Active Substance: VALSARTAN
     Dosage: 160 MG
     Route: 065
     Dates: start: 201708, end: 201803
  5. VALSARTAN ? 1 A PHARMA 160 MG FILMTABLETTEN [Suspect]
     Active Substance: VALSARTAN
     Indication: HYPERTENSION
     Dosage: 160 MG, QD
     Route: 065
     Dates: start: 20140801, end: 20190930
  6. VALSARTAN. [Suspect]
     Active Substance: VALSARTAN
     Indication: HYPERTENSION
     Dosage: 160 MG, QD
     Route: 065
     Dates: start: 201111
  7. SELENIUM [Concomitant]
     Active Substance: SELENIUM
     Indication: PRODUCT USED FOR UNKNOWN INDICATION
     Dosage: 300 UG, QOD (EVERY OTHER DAY)
     Route: 065
  8. VALSARTAN ? 1 A PHARMA 160 MG FILMTABLETTEN [Suspect]
     Active Substance: VALSARTAN
     Dosage: 160 MG
     Route: 065
     Dates: start: 201611, end: 201702
  9. VALSARTAN. [Suspect]
     Active Substance: VALSARTAN
     Dosage: 160 MG, QD
     Route: 065
     Dates: start: 20141015, end: 2018
  10. DEKRISTOL [Concomitant]
     Active Substance: CHOLECALCIFEROL
     Indication: PRODUCT USED FOR UNKNOWN INDICATION
     Dosage: 20000 IU, QW
     Route: 065
  11. BIOLECTRA [Concomitant]
     Indication: PRODUCT USED FOR UNKNOWN INDICATION
     Dosage: UNK
     Route: 065
  12. VIT D [Concomitant]
     Active Substance: VITAMIN D NOS
     Indication: PRODUCT USED FOR UNKNOWN INDICATION
     Route: 065

REACTIONS (32)
  - Product contamination [Unknown]
  - Spinal osteoarthritis [Recovering/Resolving]
  - Insomnia [Recovering/Resolving]
  - Seroma [Unknown]
  - Dizziness [Unknown]
  - Chronic sinusitis [Unknown]
  - Nasal mucosal disorder [Unknown]
  - Breast calcifications [Unknown]
  - Muscle tightness [Recovering/Resolving]
  - Application site discolouration [Unknown]
  - Nervous system disorder [Unknown]
  - Fat necrosis [Unknown]
  - Intracranial pressure increased [Unknown]
  - Breast cyst [Unknown]
  - Balance disorder [Recovering/Resolving]
  - Vomiting [Unknown]
  - Diapedesis [Recovering/Resolving]
  - Disturbance in attention [Recovering/Resolving]
  - Hyperhidrosis [Unknown]
  - Occipital neuralgia [Unknown]
  - Fibroadenoma of breast [Unknown]
  - Cough [Unknown]
  - Neoplasm [Unknown]
  - Bronchitis chronic [Recovering/Resolving]
  - Chronic obstructive pulmonary disease [Unknown]
  - Intraductal proliferative breast lesion [Not Recovered/Not Resolved]
  - Meningioma [Recovering/Resolving]
  - Hydrocephalus [Unknown]
  - Decreased activity [Unknown]
  - Musculoskeletal discomfort [Recovering/Resolving]
  - Breast enlargement [Unknown]
  - Emotional distress [Unknown]

NARRATIVE: CASE EVENT DATE: 2016
